FAERS Safety Report 13400673 (Version 2)
Quarter: 2017Q2

REPORT INFORMATION
  Report Type: Spontaneous
  Country: US (occurrence: US)
  Receive Date: 20170404
  Receipt Date: 20170426
  Transmission Date: 20170830
  Serious: No
  Sender: FDA-Public Use
  Company Number: GXBR2017US001248

PATIENT
  Sex: Female
  Weight: 49.89 kg

DRUGS (1)
  1. BIMATOPROST. [Suspect]
     Active Substance: BIMATOPROST
     Indication: MADAROSIS
     Dosage: UNK DF, QHS
     Route: 061

REACTIONS (1)
  - Drug ineffective [Recovered/Resolved]
